FAERS Safety Report 6846240-3 (Version None)
Quarter: 2010Q3

REPORT INFORMATION
  Report Type: 
  Country: None (occurrence: None)
  Receive Date: 20100715
  Receipt Date: 20070914
  Transmission Date: 20110219
  Serious: No
  Sender: FDA-Public Use
  Company Number: US-PFIZER INC-2007076804

PATIENT
  Sex: Female
  Weight: 109 kg

DRUGS (2)
  1. CHANTIX [Suspect]
     Indication: SMOKING CESSATION THERAPY
     Dates: start: 20070901
  2. METFORMIN HCL [Concomitant]
     Dates: start: 20020101

REACTIONS (3)
  - MALAISE [None]
  - NAUSEA [None]
  - PRODUCTIVE COUGH [None]
